FAERS Safety Report 6505971-5 (Version None)
Quarter: 2009Q4

REPORT INFORMATION
  Report Type: 
  Country: None (occurrence: None)
  Receive Date: 20091217
  Receipt Date: 20091217
  Transmission Date: 20100525
  Serious: Yes (Death)
  Sender: FDA-Public Use
  Company Number: None

PATIENT
  Sex: Female
  Weight: 53.5244 kg

DRUGS (2)
  1. ROXICODONE [Suspect]
     Indication: PAIN
     Dosage: 4 PILLS 4 HOURS DAILY
     Dates: start: 20050901, end: 20090101
  2. ROXICODONE [Suspect]
     Indication: TOOTHACHE
     Dosage: 4 PILLS 4 HOURS DAILY
     Dates: start: 20050901, end: 20090101

REACTIONS (1)
  - DRUG TOXICITY [None]
